FAERS Safety Report 8393486-1 (Version None)
Quarter: 2012Q2

REPORT INFORMATION
  Report Type: 
  Country: None (occurrence: None)
  Receive Date: 20120529
  Receipt Date: 20120523
  Transmission Date: 20120825
  Serious: Yes (Death, Hospitalization)
  Sender: FDA-Public Use
  Company Number: CR-ELI_LILLY_AND_COMPANY-CR201008006266

PATIENT
  Age: 46 Year
  Sex: Male

DRUGS (7)
  1. EXENATIDE [Suspect]
     Dosage: 10 UG, BID
     Route: 058
     Dates: start: 20091201, end: 20100501
  2. METFORMIN HCL [Concomitant]
     Indication: TYPE 2 DIABETES MELLITUS
  3. LIPID MODIFYING AGENTS [Concomitant]
     Dosage: UNK, UNKNOWN
  4. ANTIHYPERTENSIVES [Concomitant]
     Dosage: UNK, UNKNOWN
  5. EXENATIDE [Suspect]
     Indication: DIABETES MELLITUS
     Dosage: 5 UG, 2/D
     Route: 058
     Dates: start: 20091101, end: 20091201
  6. REGULAR INSULIN [Concomitant]
     Dosage: UNK, UNKNOWN
  7. INSULIN INSULATARD NPH NORDISK [Concomitant]
     Dosage: UNK, UNKNOWN

REACTIONS (7)
  - PORTAL VEIN THROMBOSIS [None]
  - DIZZINESS [None]
  - PORTAL HYPERTENSION [None]
  - HEPATIC FAILURE [None]
  - HEPATIC NEOPLASM MALIGNANT [None]
  - GASTRITIS [None]
  - GASTROINTESTINAL HAEMORRHAGE [None]
